FAERS Safety Report 9879449 (Version 1)
Quarter: 2014Q1

REPORT INFORMATION
  Report Type: Spontaneous
  Country: US (occurrence: US)
  Receive Date: 20140206
  Receipt Date: 20140206
  Transmission Date: 20141002
  Serious: No
  Sender: FDA-Public Use
  Company Number: US-GILEAD-2013-0087168

PATIENT
  Age: 20 Year
  Sex: Male

DRUGS (2)
  1. STRIBILD [Suspect]
     Indication: HIV INFECTION
     Dosage: 800 MG, UNK
     Dates: start: 20131009, end: 20131018
  2. STRIBILD [Suspect]
     Indication: ACQUIRED IMMUNODEFICIENCY SYNDROME

REACTIONS (3)
  - Abdominal pain upper [Unknown]
  - Nausea [Unknown]
  - Diarrhoea [Unknown]
